FAERS Safety Report 6148172-5 (Version None)
Quarter: 2009Q2

REPORT INFORMATION
  Report Type: 
  Country: None (occurrence: None)
  Receive Date: 20090406
  Receipt Date: 20090327
  Transmission Date: 20091009
  Serious: Yes (Hospitalization)
  Sender: FDA-Public Use
  Company Number: WAES 0709USA02327

PATIENT
  Age: 65 Year
  Sex: Male

DRUGS (19)
  1. CAP VORINOSTAT [Suspect]
     Indication: NON-SMALL CELL LUNG CANCER
     Dosage: 400 MG/DAILY PO ; 400 MG/DAILY PO ; 400 MG/DAILY PO
     Route: 048
     Dates: start: 20070831, end: 20070913
  2. CAP VORINOSTAT [Suspect]
     Indication: NON-SMALL CELL LUNG CANCER
     Dosage: 400 MG/DAILY PO ; 400 MG/DAILY PO ; 400 MG/DAILY PO
     Route: 048
     Dates: start: 20070928, end: 20071009
  3. CAP VORINOSTAT [Suspect]
     Indication: NON-SMALL CELL LUNG CANCER
     Dosage: 400 MG/DAILY PO ; 400 MG/DAILY PO ; 400 MG/DAILY PO
     Route: 048
     Dates: start: 20071018, end: 20071025
  4. CARBOPLATIN [Suspect]
     Indication: NON-SMALL CELL LUNG CANCER
     Dosage: 686 MG/1X IV ; 560 MG/1X IV ; 585 MG/1X IV
     Route: 042
     Dates: start: 20070904, end: 20070904
  5. CARBOPLATIN [Suspect]
     Indication: NON-SMALL CELL LUNG CANCER
     Dosage: 686 MG/1X IV ; 560 MG/1X IV ; 585 MG/1X IV
     Route: 042
     Dates: start: 20070928, end: 20070928
  6. CARBOPLATIN [Suspect]
     Indication: NON-SMALL CELL LUNG CANCER
     Dosage: 686 MG/1X IV ; 560 MG/1X IV ; 585 MG/1X IV
     Route: 042
     Dates: start: 20071018, end: 20071018
  7. PACLITAXEL [Suspect]
     Indication: NON-SMALL CELL LUNG CANCER
     Dosage: 388 MG/1X IV ; 290 MG/1X IV ; 294 MG/1X IV
     Route: 042
     Dates: start: 20070904, end: 20070904
  8. PACLITAXEL [Suspect]
     Indication: NON-SMALL CELL LUNG CANCER
     Dosage: 388 MG/1X IV ; 290 MG/1X IV ; 294 MG/1X IV
     Route: 042
     Dates: start: 20070928, end: 20070928
  9. PACLITAXEL [Suspect]
     Indication: NON-SMALL CELL LUNG CANCER
     Dosage: 388 MG/1X IV ; 290 MG/1X IV ; 294 MG/1X IV
     Route: 042
     Dates: start: 20071018, end: 20071018
  10. DEXAMETHASONE 4MG TAB [Concomitant]
  11. DIPHENHYDRAMINE HC1 [Concomitant]
  12. DOLASETRON MESYLATE [Concomitant]
  13. FAMOTIDINE [Concomitant]
  14. FOLIC ACID [Concomitant]
  15. IBUPROFEN [Concomitant]
  16. INDOMETHACIN [Concomitant]
  17. MORPHINE [Concomitant]
  18. THIAMINE HCL [Concomitant]
  19. ZOPICLONE [Concomitant]

REACTIONS (16)
  - ANAEMIA [None]
  - ASTHENIA [None]
  - BLOOD CULTURE POSITIVE [None]
  - CONFUSIONAL STATE [None]
  - DIARRHOEA [None]
  - DYSPHAGIA [None]
  - ESCHERICHIA BACTERAEMIA [None]
  - ESCHERICHIA SEPSIS [None]
  - FEBRILE NEUTROPENIA [None]
  - HYPOKALAEMIA [None]
  - HYPONATRAEMIA [None]
  - LUNG INFECTION [None]
  - MYALGIA [None]
  - OROPHARYNGEAL PAIN [None]
  - PNEUMONIA [None]
  - THROMBOCYTOPENIA [None]
